FAERS Safety Report 18898083 (Version 1)
Quarter: 2021Q1

REPORT INFORMATION
  Report Type: Spontaneous
  Country: US (occurrence: US)
  Receive Date: 20210213
  Receipt Date: 20210213
  Transmission Date: 20210420
  Serious: Yes (Other)
  Sender: FDA-Public Use
  Company Number: None

PATIENT
  Age: 39 Year
  Sex: Male
  Weight: 99 kg

DRUGS (1)
  1. ATIVAN [Suspect]
     Active Substance: LORAZEPAM

REACTIONS (8)
  - Mania [None]
  - Tremor [None]
  - Withdrawal syndrome [None]
  - Hallucination [None]
  - Insomnia [None]
  - Depression [None]
  - Feeling jittery [None]
  - Rebound psychosis [None]

NARRATIVE: CASE EVENT DATE: 20210210
